FAERS Safety Report 10431333 (Version 1)
Quarter: 2014Q3

REPORT INFORMATION
  Report Type: Spontaneous
  Country: US (occurrence: US)
  Receive Date: 20140904
  Receipt Date: 20140904
  Transmission Date: 20150326
  Serious: Yes (Other)
  Sender: FDA-Public Use
  Company Number: US-ABBVIE-14P-163-1278203-00

PATIENT

DRUGS (4)
  1. DEPAKOTE [Suspect]
     Active Substance: DIVALPROEX SODIUM
     Indication: MYOCLONIC EPILEPSY
  2. KEPPRA [Suspect]
     Active Substance: LEVETIRACETAM
     Indication: MYOCLONIC EPILEPSY
  3. DEPAKOTE [Suspect]
     Active Substance: DIVALPROEX SODIUM
     Indication: GENERALISED TONIC-CLONIC SEIZURE
  4. KEPPRA [Suspect]
     Active Substance: LEVETIRACETAM
     Indication: GENERALISED TONIC-CLONIC SEIZURE

REACTIONS (10)
  - Drug ineffective [Unknown]
  - Paranoia [Recovering/Resolving]
  - Convulsion [Recovering/Resolving]
  - Feeling abnormal [Unknown]
  - Paraesthesia [Recovering/Resolving]
  - Hyperhidrosis [Recovering/Resolving]
  - Hypoaesthesia [Recovering/Resolving]
  - Panic reaction [Recovering/Resolving]
  - Feeling hot [Recovering/Resolving]
  - Crying [Unknown]
